FAERS Safety Report 18541632 (Version 1)
Quarter: 2020Q4

REPORT INFORMATION
  Report Type: Spontaneous
  Country: US (occurrence: US)
  Receive Date: 20201124
  Receipt Date: 20201124
  Transmission Date: 20210114
  Serious: Yes (Other)
  Sender: FDA-Public Use
  Company Number: US-TAKEDA-2020TUS045073

PATIENT
  Sex: Female
  Weight: 95.24 kg

DRUGS (39)
  1. HEPARIN [Concomitant]
     Active Substance: HEPARIN SODIUM
  2. LIDOCAINE. [Concomitant]
     Active Substance: LIDOCAINE
  3. DOCUSATE [Concomitant]
     Active Substance: DOCUSATE
  4. COMPAZINE [Concomitant]
     Active Substance: PROCHLORPERAZINE MALEATE
  5. DICLOFENAC [Concomitant]
     Active Substance: DICLOFENAC
  6. GAMMAGARD LIQUID [Suspect]
     Active Substance: HUMAN IMMUNOGLOBULIN G
     Indication: HYPOGAMMAGLOBULINAEMIA
     Dosage: 35 GRAM, 4/WEEK
     Route: 042
     Dates: start: 20140917
  7. SOLU-MEDROL [Concomitant]
     Active Substance: METHYLPREDNISOLONE SODIUM SUCCINATE
  8. ZYRTEC [Concomitant]
     Active Substance: CETIRIZINE HYDROCHLORIDE
  9. LEVOTHYROXINE. [Concomitant]
     Active Substance: LEVOTHYROXINE
  10. ACETAMINOPHEN. [Concomitant]
     Active Substance: ACETAMINOPHEN
  11. DEXTROSE. [Concomitant]
     Active Substance: DEXTROSE
  12. NORCO [Concomitant]
     Active Substance: ACETAMINOPHEN\HYDROCODONE BITARTRATE
  13. SODIUM CHLORIDE. [Concomitant]
     Active Substance: SODIUM CHLORIDE
  14. LEUCOVORINA [Concomitant]
     Active Substance: LEUCOVORIN CALCIUM
  15. ACTEMRA [Concomitant]
     Active Substance: TOCILIZUMAB
  16. MINIPRESS [Concomitant]
     Active Substance: PRAZOSIN HYDROCHLORIDE
  17. CLOTRIMAZOLE. [Concomitant]
     Active Substance: CLOTRIMAZOLE
  18. ASPIRIN (E.C.) [Concomitant]
     Active Substance: ASPIRIN
  19. TRAZODONE [Concomitant]
     Active Substance: TRAZODONE HYDROCHLORIDE
  20. REFRESH TEARS [Concomitant]
     Active Substance: CARBOXYMETHYLCELLULOSE SODIUM
  21. EPINEPHRINE ASCORBATE [Concomitant]
  22. ALBUTEROL HFA [Concomitant]
     Active Substance: ALBUTEROL SULFATE
  23. SOLU-CORTEF [Concomitant]
     Active Substance: HYDROCORTISONE SODIUM SUCCINATE
  24. ZOFRAN [Concomitant]
     Active Substance: ONDANSETRON HYDROCHLORIDE
  25. PROVENTIL HFA [Concomitant]
     Active Substance: ALBUTEROL SULFATE
  26. MIRALAX [Concomitant]
     Active Substance: POLYETHYLENE GLYCOL 3350
  27. MACRODANTIN [Concomitant]
     Active Substance: NITROFURANTOIN
  28. BISACODYL. [Concomitant]
     Active Substance: BISACODYL
  29. METHOTREXATE. [Concomitant]
     Active Substance: METHOTREXATE
  30. LYRICA [Concomitant]
     Active Substance: PREGABALIN
  31. TRIAMCINOLONE [Concomitant]
     Active Substance: TRIAMCINOLONE
  32. DIPHENHYDRAMINE. [Concomitant]
     Active Substance: DIPHENHYDRAMINE
  33. HYDROXYZINE [Concomitant]
     Active Substance: HYDROXYZINE HYDROCHLORIDE
  34. PREVACID [Concomitant]
     Active Substance: LANSOPRAZOLE
  35. COLCHICINE. [Concomitant]
     Active Substance: COLCHICINE
  36. BACLOFEN. [Concomitant]
     Active Substance: BACLOFEN
  37. KETOCONAZOLE. [Concomitant]
     Active Substance: KETOCONAZOLE
  38. ZYPREXA [Concomitant]
     Active Substance: OLANZAPINE
  39. HYDROCORTISONE. [Concomitant]
     Active Substance: HYDROCORTISONE

REACTIONS (4)
  - Fatigue [Unknown]
  - Juvenile idiopathic arthritis [Unknown]
  - Nausea [Unknown]
  - Pain [Unknown]
